FAERS Safety Report 5466911-3 (Version None)
Quarter: 2007Q3

REPORT INFORMATION
  Report Type: 
  Country: None (occurrence: None)
  Receive Date: 20070920
  Receipt Date: 20070906
  Transmission Date: 20080115
  Serious: Yes (Life-Threatening)
  Sender: FDA-Public Use
  Company Number: 2007EU001948

PATIENT
  Age: 10 Year
  Sex: Male
  Weight: 30 kg

DRUGS (12)
  1. TACROLIMUS [Suspect]
     Indication: RENAL TRANSPLANT
     Dosage: 7 MG, ORAL
     Route: 048
     Dates: start: 20040101, end: 20070805
  2. SIROLIMUS(SIROLIMUS) [Suspect]
     Indication: KIDNEY TRANSPLANT REJECTION
     Dosage: 3 MG, ORAL
     Route: 048
     Dates: start: 20070710, end: 20070805
  3. ALFACALCIDOL (ALFACALCIDOL) [Concomitant]
  4. BENDROFLUAZIDE (BENDROFLUMETHIAZIDE) [Concomitant]
  5. COTRIMOXAZOLE RATIOPHARM (SULFAMETHOXAZOLE, TRIMETHOPRIM) [Concomitant]
  6. MAGNESIUM GLYCEROPHOSPHATE (MAGNESIUM GLYCEROPHOSPHATE) [Concomitant]
  7. NEORECORMON (EPOETIN ALFA) [Concomitant]
  8. NIFEDIPINE [Concomitant]
  9. NYSTATIN [Concomitant]
  10. PREDNISONE [Concomitant]
  11. RANITIDINE HCL [Concomitant]
  12. SODIUM BICARBONATE IN PLASTIC CONTAINER [Concomitant]

REACTIONS (3)
  - CONVULSION [None]
  - MALIGNANT HYPERTENSION [None]
  - REVERSIBLE POSTERIOR LEUKOENCEPHALOPATHY SYNDROME [None]
